FAERS Safety Report 7921824-X (Version None)
Quarter: 2011Q4

REPORT INFORMATION
  Report Type: 
  Country: None (occurrence: None)
  Receive Date: 20111117
  Receipt Date: 20111109
  Transmission Date: 20120403
  Serious: Yes (Hospitalization)
  Sender: FDA-Public Use
  Company Number: CA-ABBOTT-11P-028-0872621-00

PATIENT
  Sex: Male
  Weight: 114 kg

DRUGS (21)
  1. INSULIN HUMAN [Concomitant]
     Indication: DIABETES MELLITUS
     Dates: start: 20090501
  2. FLONASE [Concomitant]
     Indication: CHRONIC OBSTRUCTIVE PULMONARY DISEASE
     Dates: start: 20100223
  3. AMLODIPINE [Concomitant]
     Indication: HYPERTENSION
     Dates: start: 20100223
  4. FUROSEMIDE [Concomitant]
     Indication: HYPERTENSION
     Dates: start: 20061201
  5. PRO-METFORMIN [Concomitant]
     Indication: DIABETES MELLITUS
     Dates: start: 20080301
  6. VENTOLIN [Concomitant]
     Indication: CHRONIC OBSTRUCTIVE PULMONARY DISEASE
     Dates: start: 20061101
  7. COMMERCIAL HUMIRA [Concomitant]
     Indication: PRODUCT USED FOR UNKNOWN INDICATION
     Dates: start: 20101021
  8. DIOVAN HCT [Concomitant]
     Indication: HYPERTENSION
     Dates: start: 20090901
  9. NEXIUM [Concomitant]
     Indication: DYSPEPSIA
     Dates: start: 20071101
  10. NOVORAPID [Concomitant]
     Indication: DIABETES MELLITUS
     Dates: start: 20100223
  11. SPIRIVA [Concomitant]
     Indication: CHRONIC OBSTRUCTIVE PULMONARY DISEASE
     Dates: start: 20071001
  12. DESOCORT [Concomitant]
     Indication: PSORIASIS
     Dosage: 1 APPLICATION
     Dates: start: 20110414
  13. CRESTOR [Concomitant]
     Indication: HYPERCHOLESTEROLAEMIA
     Dates: start: 20080601
  14. ACETYLSALICYLIC ACID SRT [Concomitant]
     Indication: CARDIOVASCULAR EVENT PROPHYLAXIS
     Dates: start: 20070301
  15. HUMIRA [Suspect]
     Indication: PSORIASIS
     Route: 058
     Dates: start: 20110414, end: 20111028
  16. SEREVENT [Concomitant]
     Indication: CHRONIC OBSTRUCTIVE PULMONARY DISEASE
     Dates: start: 20061101
  17. COLCHICINE [Concomitant]
     Indication: GOUT
     Dates: start: 20080601
  18. NEXIUM [Concomitant]
     Indication: PROPHYLAXIS
  19. FLOVENT [Concomitant]
     Indication: CHRONIC OBSTRUCTIVE PULMONARY DISEASE
     Dosage: 1 INHALATION
     Route: 055
     Dates: start: 20080701
  20. CLOTRIMAZOLE [Concomitant]
     Indication: PSORIASIS
     Dosage: 1 APPLICATION
     Dates: start: 20110414
  21. ALLOPURINOL [Concomitant]
     Indication: GOUT
     Dates: start: 20080101

REACTIONS (2)
  - INFECTION [None]
  - PYREXIA [None]
